FAERS Safety Report 16782059 (Version 1)
Quarter: 2019Q3

REPORT INFORMATION
  Report Type: Spontaneous
  Country: US (occurrence: US)
  Receive Date: 20190906
  Receipt Date: 20190906
  Transmission Date: 20191005
  Serious: Yes (Hospitalization)
  Sender: FDA-Public Use
  Company Number: US-FRESENIUS KABI-FK201909800

PATIENT
  Age: 2 Year
  Sex: Female

DRUGS (3)
  1. SUXAMETHONIUM [Concomitant]
     Active Substance: SUCCINYLCHOLINE
     Indication: AIRWAY COMPLICATION OF ANAESTHESIA
     Route: 065
  2. PARACETAMOL (MANUFACTURER UNKNOWN) [Suspect]
     Active Substance: ACETAMINOPHEN
     Indication: PRODUCT USED FOR UNKNOWN INDICATION
     Route: 065
  3. KETAMINE [Concomitant]
     Active Substance: KETAMINE
     Indication: AIRWAY COMPLICATION OF ANAESTHESIA
     Route: 065

REACTIONS (4)
  - Seizure [Recovering/Resolving]
  - Hypoglycaemia [Recovering/Resolving]
  - Overdose [Recovering/Resolving]
  - Acute hepatic failure [Recovering/Resolving]
